FAERS Safety Report 17620101 (Version 1)
Quarter: 2020Q2

REPORT INFORMATION
  Report Type: Spontaneous
  Country: US (occurrence: US)
  Receive Date: 20200403
  Receipt Date: 20200403
  Transmission Date: 20200713
  Serious: No
  Sender: FDA-Public Use
  Company Number: US-009507513-2003USA010324

PATIENT
  Age: 17 Year
  Sex: Female
  Weight: 56.24 kg

DRUGS (2)
  1. NEXPLANON [Suspect]
     Active Substance: ETONOGESTREL
     Indication: CONTRACEPTION
     Dosage: 1 IMPLANT, LEFT ARM
     Route: 059
     Dates: start: 20190813, end: 20200326
  2. LOLO [Concomitant]
     Active Substance: ETHINYL ESTRADIOL\NORETHINDRONE ACETATE
     Indication: CONTRACEPTION
     Dosage: 2 CYCLES

REACTIONS (2)
  - Metrorrhagia [Recovering/Resolving]
  - Device breakage [Unknown]

NARRATIVE: CASE EVENT DATE: 2019
